FAERS Safety Report 14212696 (Version 11)
Quarter: 2019Q2

REPORT INFORMATION
  Report Type: Report from Study
  Country: IT (occurrence: IT)
  Receive Date: 20171122
  Receipt Date: 20190515
  Transmission Date: 20190711
  Serious: Yes (Death, Hospitalization)
  Sender: FDA-Public Use
  Company Number: IT-MYLANLABS-2017M1073405

PATIENT
  Age: 78 Year
  Sex: Male
  Weight: 70 kg

DRUGS (49)
  1. FENTANYL CITRATE. [Concomitant]
     Active Substance: FENTANYL CITRATE
     Dosage: 133 MICROGRAM, PRN
     Route: 048
     Dates: start: 201709
  2. FENTANYL CITRATE. [Concomitant]
     Active Substance: FENTANYL CITRATE
     Dosage: 133 MILLIGRAM, PRN
     Route: 048
     Dates: start: 201709
  3. DEXAMETHASONE. [Concomitant]
     Active Substance: DEXAMETHASONE
     Indication: DECREASED APPETITE
     Dosage: UNK
  4. DEXAMETHASONE. [Concomitant]
     Active Substance: DEXAMETHASONE
     Indication: WEIGHT DECREASED
     Dosage: UNK
     Dates: start: 20170912, end: 20170920
  5. ENZALUTAMIDE [Suspect]
     Active Substance: ENZALUTAMIDE
     Dosage: 160 MILLIGRAM, QD
     Route: 048
     Dates: start: 20151220
  6. LYRICA [Concomitant]
     Active Substance: PREGABALIN
     Indication: PAIN IN EXTREMITY
     Dosage: 75 MG, BID
     Route: 048
     Dates: start: 200107
  7. CALCIUM SANDOZ                     /01576101/ [Concomitant]
     Dosage: 0.5 DF, QD, 0.5 DF, 1X/DAY
     Route: 048
     Dates: start: 20170823, end: 20170919
  8. OXYCONTIN [Concomitant]
     Active Substance: OXYCODONE HYDROCHLORIDE
     Indication: PAIN IN EXTREMITY
     Dosage: 20 MG, QD (160 MG, 1X/DAY )
     Route: 048
     Dates: start: 20170803
  9. PREDNISONE. [Suspect]
     Active Substance: PREDNISONE
     Indication: PROSTATE CANCER
     Dosage: 10 MG, QD
     Route: 048
     Dates: start: 20151020, end: 20171107
  10. FENTANYL. [Suspect]
     Active Substance: FENTANYL
     Dosage: 50 MICROGRAM, QH,EVERY 3 DAYS
     Route: 062
     Dates: start: 20170726
  11. ABIRATERONE. [Suspect]
     Active Substance: ABIRATERONE ACETATE
     Indication: PROSTATE CANCER
     Dosage: 1000 MG DAILY
     Route: 048
     Dates: start: 20151020, end: 20171107
  12. ORAMORPH [Concomitant]
     Active Substance: MORPHINE SULFATE
     Indication: PAIN IN EXTREMITY
     Dosage: 12 GTT DROPS, PRN
     Route: 048
     Dates: start: 20170726
  13. ORAMORPH [Concomitant]
     Active Substance: MORPHINE SULFATE
     Dosage: UNK
  14. ZOMETA [Concomitant]
     Active Substance: ZOLEDRONIC ACID
     Indication: PROSTATE CANCER
     Dosage: 160 MILLIGRAM, QD, (4 MG, MONTHLY)
     Route: 042
     Dates: start: 20111108, end: 20170727
  15. CALCIUM SANDOZ                     /01576101/ [Concomitant]
     Indication: HYPOCALCAEMIA
     Dosage: 0.5 DF, QD, 0.5 DF, 1X/DAY
     Route: 048
     Dates: start: 20170823, end: 20170919
  16. FENTANYL                           /00174602/ [Concomitant]
     Active Substance: FENTANYL
     Indication: PAIN IN EXTREMITY
  17. MATRIFEN [Suspect]
     Active Substance: FENTANYL
     Dosage: UNK
  18. FENTANYL. [Suspect]
     Active Substance: FENTANYL
     Indication: PAIN IN EXTREMITY
     Dosage: 50 MICROGRAM, QH,EVERY 3 DAYS, CYCLICAL
     Route: 062
     Dates: start: 20170726
  19. VELLOFENT [Concomitant]
     Indication: PAIN IN EXTREMITY
     Dosage: 133 MG
     Route: 048
     Dates: start: 201709
  20. SOLDESAM [Concomitant]
     Active Substance: DEXAMETHASONE
     Dosage: UNK
  21. FENTANYL CITRATE. [Concomitant]
     Active Substance: FENTANYL CITRATE
     Dosage: 133 MILLIGRAM, PRN
     Route: 048
     Dates: start: 201709
  22. ENZALUTAMIDE [Suspect]
     Active Substance: ENZALUTAMIDE
     Indication: PROSTATE CANCER
     Dosage: 160 MG DAILY, ADDITIONAL INFO: EXPDT=30SEP2018
     Route: 048
     Dates: start: 20140603
  23. DELTACORTENE [Concomitant]
     Active Substance: PREDNISONE
     Indication: ARTHRALGIA
     Dosage: 12.5 MG, QD
     Route: 048
     Dates: start: 201709
  24. DELTACORTENE [Concomitant]
     Active Substance: PREDNISONE
     Indication: PAIN IN EXTREMITY
     Dosage: UNK
  25. LYRICA [Concomitant]
     Active Substance: PREGABALIN
     Dosage: 75 MG, BID (150 MG, QD)
     Route: 048
     Dates: start: 201704
  26. FENTANYL CITRATE. [Concomitant]
     Active Substance: FENTANYL CITRATE
     Indication: PAIN IN EXTREMITY
     Dosage: 133 MILLIGRAM, PRN
     Route: 048
     Dates: start: 201709
  27. FENTANYL CITRATE. [Concomitant]
     Active Substance: FENTANYL CITRATE
     Dosage: 133 MICROGRAM, PRN
     Route: 048
     Dates: start: 201709
  28. FENTANYL. [Suspect]
     Active Substance: FENTANYL
     Dosage: 50 MICROGRAM, QH,EVERY 3 DAYS, CYCLICAL
     Route: 062
     Dates: start: 20170726
  29. ENANTONE LP [Concomitant]
     Active Substance: LEUPROLIDE ACETATE
     Indication: PROSTATE CANCER
     Dosage: 160 MILLIGRAM, QD, 11.25 MG, Q3MONTHS
     Route: 030
     Dates: start: 201211
  30. LYRICA [Concomitant]
     Active Substance: PREGABALIN
     Dosage: UNK
  31. SOLDESAM [Concomitant]
     Active Substance: DEXAMETHASONE
     Indication: PAIN IN EXTREMITY
     Dosage: 64 DROP, QD, 160 MG, 1X/DAY
     Route: 048
     Dates: start: 20170802
  32. PREDNISONE. [Suspect]
     Active Substance: PREDNISONE
     Dosage: 10 MILLIGRAM, QD
     Route: 048
     Dates: start: 20151220
  33. FENTANYL. [Suspect]
     Active Substance: FENTANYL
     Dosage: 50 MICROGRAM, QH,EVERY 3 DAYS, CYCLICAL
     Route: 062
     Dates: start: 20170726
  34. TACHIPIRINA [Concomitant]
     Active Substance: ACETAMINOPHEN
     Indication: PAIN IN EXTREMITY
     Dosage: 1000 MG, BID (2000 MG,QD)
     Route: 048
     Dates: start: 20170901, end: 20171003
  35. ENANTONE LP [Concomitant]
     Active Substance: LEUPROLIDE ACETATE
     Dosage: UNK
     Route: 030
  36. SOLDESAM [Concomitant]
     Active Substance: DEXAMETHASONE
     Indication: ARTHRALGIA
     Dosage: 64 GTT, UNK
     Route: 048
  37. CALCIUM SANDOZ                     /01576101/ [Concomitant]
     Dosage: UNK
     Dates: start: 20170823, end: 20170919
  38. CALCIUM SANDOZ                     /01576101/ [Concomitant]
     Dosage: 0.5 DF, QD, 0.5 DF, 1X/DAY
     Route: 048
     Dates: start: 20170823, end: 20170919
  39. OXYCONTIN [Concomitant]
     Active Substance: OXYCODONE HYDROCHLORIDE
     Indication: ARTHRALGIA
     Dosage: 10 MG, BID
     Route: 048
     Dates: start: 20170803
  40. OXYCONTIN [Concomitant]
     Active Substance: OXYCODONE HYDROCHLORIDE
     Dosage: UNK
  41. MATRIFEN [Suspect]
     Active Substance: FENTANYL
     Indication: PAIN IN EXTREMITY
     Dosage: 50 ?G, Q3D, Q1H
     Route: 062
     Dates: start: 20170726
  42. MATRIFEN [Suspect]
     Active Substance: FENTANYL
     Indication: ARTHRALGIA
     Dosage: UNK UNK, CYCLE
     Route: 061
  43. TACHIPIRINA [Concomitant]
     Active Substance: ACETAMINOPHEN
     Dosage: UNK
  44. FENTANYL                           /00174602/ [Concomitant]
     Active Substance: FENTANYL
     Indication: ARTHRALGIA
     Dosage: 160 MILLIGRAM, QD
     Route: 062
     Dates: start: 20170726
  45. FENTANYL. [Suspect]
     Active Substance: FENTANYL
     Dosage: 50 MICROGRAM, QH,EVERY 3 DAYS, CYCLICAL
     Route: 062
     Dates: start: 20170726
  46. ORAMORPH [Concomitant]
     Active Substance: MORPHINE SULFATE
     Indication: ARTHRALGIA
     Dosage: 12 GTT, PRN
     Route: 048
  47. ZOMETA [Concomitant]
     Active Substance: ZOLEDRONIC ACID
     Dosage: UNK
     Route: 065
     Dates: start: 20111108, end: 20170727
  48. CALCIUM SANDOZ                     /01576101/ [Concomitant]
     Dosage: 0.5 DF, QD, 0.5 DF, 1X/DAY
     Route: 048
     Dates: start: 20170823, end: 20170919
  49. CALCIUM SANDOZ                     /01576101/ [Concomitant]
     Dosage: 0.5 DF, QD, 0.5 DF, 1X/DAY
     Route: 048
     Dates: start: 20170823, end: 20170919

REACTIONS (5)
  - Decreased appetite [Recovered/Resolved]
  - Pyrexia [Fatal]
  - Pain in extremity [Recovered/Resolved]
  - Disease progression [Fatal]
  - Weight decreased [Recovered/Resolved]

NARRATIVE: CASE EVENT DATE: 20170912
